FAERS Safety Report 15155566 (Version 2)
Quarter: 2018Q3

REPORT INFORMATION
  Report Type: Spontaneous
  Country: DE (occurrence: DE)
  Receive Date: 20180717
  Receipt Date: 20180806
  Transmission Date: 20181010
  Serious: Yes (Other)
  Sender: FDA-Public Use
  Company Number: PHHY2018DE044373

PATIENT
  Sex: Female
  Weight: 60 kg

DRUGS (1)
  1. MTX HEXAL [Suspect]
     Active Substance: METHOTREXATE SODIUM
     Indication: RHEUMATOID ARTHRITIS
     Dosage: 7.5 MG, QW
     Route: 058
     Dates: start: 201511

REACTIONS (8)
  - Transient ischaemic attack [Unknown]
  - Gait disturbance [Recovered/Resolved]
  - Cerebrovascular accident [Unknown]
  - Aphasia [Recovered/Resolved]
  - Gait disturbance [Unknown]
  - Speech disorder [Unknown]
  - Gait disturbance [Recovered/Resolved]
  - Vascular rupture [Unknown]

NARRATIVE: CASE EVENT DATE: 201805
